FAERS Safety Report 6573212-9 (Version None)
Quarter: 2010Q1

REPORT INFORMATION
  Report Type: 
  Country: None (occurrence: None)
  Receive Date: 20100208
  Receipt Date: 20100127
  Transmission Date: 20100710
  Serious: Yes (Other)
  Sender: FDA-Public Use
  Company Number: NL-WYE-H13077310

PATIENT
  Age: 64 Year
  Sex: Female

DRUGS (3)
  1. PANTOZOL [Suspect]
     Indication: BARRETT'S OESOPHAGUS
     Dosage: 40 MG, FREQUENCY UNKNOWN
     Route: 048
     Dates: start: 20060101
  2. MELOXICAM [Concomitant]
     Dosage: 7.5 MG
     Route: 048
  3. SULFASALAZINE [Concomitant]
     Dosage: 500 MG
     Route: 048

REACTIONS (2)
  - ANAEMIA [None]
  - VITAMIN B12 DEFICIENCY [None]
